FAERS Safety Report 9437186 (Version 3)
Quarter: 2013Q3

REPORT INFORMATION
  Report Type: Spontaneous
  Country: JP (occurrence: JP)
  Receive Date: 20130802
  Receipt Date: 20130916
  Transmission Date: 20140515
  Serious: Yes (Death, Other)
  Sender: FDA-Public Use
  Company Number: PHHY2013JP082193

PATIENT
  Age: 66 Year
  Sex: Male

DRUGS (5)
  1. SANDIMMUN [Suspect]
     Indication: CASTLEMAN^S DISEASE
     Dosage: 50 MG, DAILY-DILUTED INTO 200ML
     Route: 041
     Dates: start: 201304, end: 201304
  2. SANDIMMUN [Suspect]
     Indication: OFF LABEL USE
     Dosage: 125 MG, DAILY
     Route: 041
     Dates: start: 20130422, end: 20130422
  3. SANDIMMUN [Suspect]
     Dosage: 63 MG, DAILY
     Route: 041
     Dates: start: 20130423
  4. SANDIMMUN [Suspect]
     Dosage: 12.5 MG, DAILY
     Route: 041
     Dates: start: 20130423
  5. RITUXIMAB [Concomitant]
     Indication: CASTLEMAN^S DISEASE
     Route: 041

REACTIONS (5)
  - Hepatic failure [Fatal]
  - Castleman^s disease [Fatal]
  - Cholecystitis acute [Not Recovered/Not Resolved]
  - Drug level fluctuating [Unknown]
  - Immunosuppressant drug level increased [Unknown]
